FAERS Safety Report 7155980-0 (Version None)
Quarter: 2010Q4

REPORT INFORMATION
  Report Type: 
  Country: None (occurrence: None)
  Receive Date: 20101214
  Receipt Date: 20101208
  Transmission Date: 20110411
  Serious: No
  Sender: FDA-Public Use
  Company Number: PHHY2010JP03627

PATIENT
  Sex: Female

DRUGS (21)
  1. TASIGNA [Suspect]
     Indication: CHRONIC MYELOID LEUKAEMIA
     Dosage: 200MG/DAY
     Route: 048
     Dates: start: 20090903, end: 20090923
  2. TASIGNA [Suspect]
     Dosage: 200 MG EVERY TWO DAYS
     Route: 048
     Dates: start: 20090924, end: 20091008
  3. TASIGNA [Suspect]
     Dosage: TOTAL 200 MG (TWO DOSES) EVERY WEEK.
     Route: 048
     Dates: start: 20091009, end: 20091018
  4. TASIGNA [Suspect]
     Dosage: TOTAL 200 MG (THREE DOSES) EVERY WEEK
     Route: 048
     Dates: start: 20091019, end: 20100120
  5. TASIGNA [Suspect]
     Dosage: 200 MG, FOUR TIMES A WEEK
     Route: 048
     Dates: start: 20100121, end: 20100325
  6. TASIGNA [Suspect]
     Dosage: 200 MG FIVE TIMES A WEEK
     Route: 048
     Dates: start: 20100326, end: 20100411
  7. TASIGNA [Suspect]
     Dosage: 200 MG FOUR TIMES A WEEK
     Route: 048
     Dates: start: 20100412, end: 20100505
  8. TASIGNA [Suspect]
     Dosage: 200 MG FIVE TIMES A WEEK
     Route: 048
     Dates: start: 20100506, end: 20100609
  9. TASIGNA [Suspect]
     Dosage: 200 MG FOUR TIMES A WEEK
     Route: 048
     Dates: start: 20100610
  10. HYDREA [Concomitant]
     Indication: CHRONIC MYELOID LEUKAEMIA
     Dosage: 500 MG
     Route: 048
     Dates: start: 20020925, end: 20040823
  11. MUCOSTA [Concomitant]
     Dosage: 300 MG
     Route: 048
     Dates: start: 20090903
  12. URSO 250 [Concomitant]
     Dosage: 300 MG
     Route: 048
     Dates: start: 20090917
  13. ADONA [Concomitant]
     Dosage: 20 MG
     Route: 048
     Dates: start: 20091014, end: 20091021
  14. TRANEXAMIC ACID [Concomitant]
     Dosage: 500 MG
     Route: 048
     Dates: start: 20091014, end: 20091021
  15. POVIDONE IODINE [Concomitant]
     Dosage: UNK
     Route: 048
     Dates: start: 20091026
  16. RINDERON-VG [Concomitant]
     Dosage: 5 G, UNK
     Dates: start: 20091001, end: 20091007
  17. FOIPAN [Concomitant]
     Indication: PANCREATIC ENZYMES INCREASED
     Dosage: 6 TABLETS DAILY
     Route: 048
  18. ZETIA [Concomitant]
     Indication: DYSLIPIDAEMIA
     Dosage: 10 MG, UNK
     Route: 048
     Dates: start: 20100128
  19. LIPITOR [Concomitant]
     Indication: DYSLIPIDAEMIA
     Dosage: 5 MG, UNK
     Dates: start: 20100326
  20. FERROUS CITRATE [Concomitant]
     Dosage: 50 MG, UNK
     Route: 048
     Dates: start: 20100312, end: 20100411
  21. NAUZELIN [Concomitant]
     Dosage: 5 MG, UNK
     Route: 048
     Dates: start: 20100312, end: 20100411

REACTIONS (3)
  - NEUTROPHIL COUNT DECREASED [None]
  - PANCYTOPENIA [None]
  - WHITE BLOOD CELL COUNT DECREASED [None]
